FAERS Safety Report 9648109 (Version 1)
Quarter: 2013Q4

REPORT INFORMATION
  Report Type: Spontaneous
  Country: US (occurrence: US)
  Receive Date: 20131028
  Receipt Date: 20131028
  Transmission Date: 20140711
  Serious: No
  Sender: FDA-Public Use
  Company Number: US-009507513-1310USA009131

PATIENT
  Sex: Female

DRUGS (5)
  1. IMPLANON [Suspect]
     Indication: CONTRACEPTION
     Dosage: 68 MG, UNK
     Route: 059
     Dates: start: 20110525
  2. REMERON [Concomitant]
  3. GABAPENTIN [Concomitant]
  4. AMBIEN [Concomitant]
  5. COCAINE [Concomitant]

REACTIONS (1)
  - Unintended pregnancy [Unknown]
